FAERS Safety Report 7856132 (Version 7)
Quarter: 2013Q4

REPORT INFORMATION
  Report Type: Spontaneous
  Country: US (occurrence: US)
  Receive Date: 20110315
  Receipt Date: 20131026
  Transmission Date: 20140711
  Serious: Yes (Hospitalization, Other)
  Sender: FDA-Public Use
  Company Number: US-ROCHE-747851

PATIENT
  Age: 21 Year
  Sex: Female
  Weight: 53.1 kg

DRUGS (3)
  1. ACCUTANE [Suspect]
     Indication: ACNE
     Route: 065
  2. ACCUTANE [Suspect]
     Route: 065
     Dates: start: 19890313, end: 198906
  3. ACCUTANE [Suspect]
     Route: 065

REACTIONS (8)
  - Crohn^s disease [Unknown]
  - Inflammatory bowel disease [Unknown]
  - Large intestinal stenosis [Unknown]
  - Depression [Unknown]
  - Psoriasis [Unknown]
  - Emotional distress [Unknown]
  - Arthralgia [Unknown]
  - Nephrolithiasis [Unknown]
